FAERS Safety Report 11681629 (Version 1)
Quarter: 2015Q4

REPORT INFORMATION
  Report Type: Spontaneous
  Country: US (occurrence: None)
  Receive Date: 20151027
  Receipt Date: 20151027
  Transmission Date: 20160304
  Serious: Yes (Other)
  Sender: FDA-Public Use
  Company Number: US2015149731

PATIENT
  Age: 80 Year
  Sex: Female

DRUGS (1)
  1. TUMS ULTRA [Suspect]
     Active Substance: CALCIUM CARBONATE
     Indication: ANTACID THERAPY
     Dosage: MORE THAN 7 TABLETS IN 24 HOURS

REACTIONS (3)
  - Drug dependence [None]
  - Diarrhoea [None]
  - Extra dose administered [None]
